FAERS Safety Report 6999633-8 (Version None)
Quarter: 2010Q3

REPORT INFORMATION
  Report Type: 
  Country: None (occurrence: None)
  Receive Date: 20100920
  Receipt Date: 20100622
  Transmission Date: 20110219
  Serious: Yes (Other)
  Sender: FDA-Public Use
  Company Number: US-ASTRAZENECA-2010SE29161

PATIENT
  Age: 316 Month
  Sex: Female
  Weight: 136.1 kg

DRUGS (4)
  1. SEROQUEL XR [Suspect]
     Indication: AFFECTIVE DISORDER
     Route: 048
     Dates: start: 20090101, end: 20100601
  2. SEROQUEL XR [Suspect]
     Indication: BIPOLAR DISORDER
     Route: 048
     Dates: start: 20090101, end: 20100601
  3. KLONOPIN [Concomitant]
     Route: 048
  4. CELEXA [Concomitant]
     Route: 048

REACTIONS (5)
  - CRYING [None]
  - DEPRESSED MOOD [None]
  - DEPRESSION [None]
  - DRUG DOSE OMISSION [None]
  - SUICIDAL IDEATION [None]
